FAERS Safety Report 9383051 (Version 1)
Quarter: 2013Q3

REPORT INFORMATION
  Report Type: Report from Study
  Country: PK (occurrence: PK)
  Receive Date: 20130704
  Receipt Date: 20130704
  Transmission Date: 20140515
  Serious: Yes (Other)
  Sender: FDA-Public Use
  Company Number: PK-ROCHE-1241513

PATIENT
  Sex: 0

DRUGS (8)
  1. BEVACIZUMAB [Suspect]
     Indication: DIABETIC RETINAL OEDEMA
     Dosage: 1.25MG/0.05ML.
     Route: 050
  2. BEVACIZUMAB [Suspect]
     Indication: RETINAL VEIN OCCLUSION
  3. BEVACIZUMAB [Suspect]
     Indication: RETINAL VEIN OCCLUSION
  4. BEVACIZUMAB [Suspect]
     Indication: AGE-RELATED MACULAR DEGENERATION
  5. BEVACIZUMAB [Suspect]
     Indication: MACULOPATHY
  6. BEVACIZUMAB [Suspect]
     Indication: GLAUCOMA
  7. BEVACIZUMAB [Suspect]
     Indication: DIABETIC RETINOPATHY
  8. BEVACIZUMAB [Suspect]
     Indication: OFF LABEL USE

REACTIONS (5)
  - Conjunctival oedema [Unknown]
  - Iridocyclitis [Unknown]
  - Eye injury [Unknown]
  - Vitreous haemorrhage [Unknown]
  - Conjunctival haemorrhage [Unknown]
